FAERS Safety Report 5646757-3 (Version None)
Quarter: 2008Q1

REPORT INFORMATION
  Report Type: 
  Country: None (occurrence: None)
  Receive Date: 20080303
  Receipt Date: 20080225
  Transmission Date: 20080703
  Serious: Yes (Hospitalization)
  Sender: FDA-Public Use
  Company Number: GB-ROCHE-549382

PATIENT
  Age: 44 Year
  Sex: Female
  Weight: 89 kg

DRUGS (1)
  1. ORLISTAT [Suspect]
     Indication: OBESITY
     Route: 048
     Dates: start: 20060808, end: 20070101

REACTIONS (2)
  - CHOLELITHIASIS [None]
  - GASTRITIS [None]
